FAERS Safety Report 7077867-4 (Version None)
Quarter: 2010Q4

REPORT INFORMATION
  Report Type: 
  Country: None (occurrence: None)
  Receive Date: 20101101
  Receipt Date: 20101022
  Transmission Date: 20110411
  Serious: Yes (Other)
  Sender: FDA-Public Use
  Company Number: US-MPIJNJ-2010-05332

PATIENT
  Sex: Female
  Weight: 72.562 kg

DRUGS (1)
  1. VELCADE [Suspect]

REACTIONS (1)
  - METAMORPHOPSIA [None]
